FAERS Safety Report 23990647 (Version 1)
Quarter: 2024Q2

REPORT INFORMATION
  Report Type: Spontaneous
  Country: US (occurrence: US)
  Receive Date: 20240619
  Receipt Date: 20240619
  Transmission Date: 20240716
  Serious: No
  Sender: FDA-Public Use
  Company Number: US-BRISTOL-MYERS SQUIBB COMPANY-2024-098267

PATIENT
  Age: 68 Year
  Sex: Male

DRUGS (1)
  1. REVLIMID [Suspect]
     Active Substance: LENALIDOMIDE
     Indication: Plasma cell myeloma
     Route: 048

REACTIONS (7)
  - Dry mouth [Unknown]
  - Diarrhoea [Unknown]
  - Swelling [Unknown]
  - Rash [Unknown]
  - Skin fissures [Unknown]
  - Skin exfoliation [Unknown]
  - Dyspnoea [Unknown]
